FAERS Safety Report 9602285 (Version 1)
Quarter: 2013Q4

REPORT INFORMATION
  Report Type: Spontaneous
  Country: US (occurrence: US)
  Receive Date: 20131007
  Receipt Date: 20131007
  Transmission Date: 20140711
  Serious: No
  Sender: FDA-Public Use
  Company Number: US-009507513-1309USA005096

PATIENT
  Sex: Male

DRUGS (4)
  1. PEGINTRON [Suspect]
     Indication: HEPATITIS C
     Dosage: 80 MICROGRAM, ONCE A WEEK
     Route: 058
     Dates: start: 20130509, end: 2013
  2. PEGINTRON [Suspect]
     Dosage: 50 MICROGRAM, ONCE A WEEK
     Route: 058
     Dates: start: 2013, end: 201309
  3. REBETOL [Suspect]
     Indication: HEPATITIS C
  4. INCIVEK [Concomitant]

REACTIONS (2)
  - Platelet count decreased [Unknown]
  - Product quality issue [Unknown]
